FAERS Safety Report 6250642-6 (Version None)
Quarter: 2009Q2

REPORT INFORMATION
  Report Type: 
  Country: None (occurrence: None)
  Receive Date: 20090630
  Receipt Date: 20090618
  Transmission Date: 20091009
  Serious: Yes (Hospitalization)
  Sender: FDA-Public Use
  Company Number: DE-PFIZER INC-2008031999

PATIENT
  Age: 40 Year

DRUGS (3)
  1. SUNITINIB MALATE [Suspect]
     Indication: BREAST CANCER
     Dosage: 37.5 MG, 1X/DAY
     Route: 048
     Dates: start: 20080327, end: 20080403
  2. *CAPECITABINE [Suspect]
     Indication: BREAST CANCER
     Dosage: 3600 MG
     Route: 048
     Dates: start: 20080327, end: 20080403
  3. IVABRADINE [Concomitant]
     Route: 048

REACTIONS (3)
  - GASTRITIS [None]
  - PERITONITIS [None]
  - SUBILEUS [None]
